FAERS Safety Report 5309904-9 (Version None)
Quarter: 2007Q1

REPORT INFORMATION
  Report Type: 
  Country: None (occurrence: None)
  Receive Date: 20070201
  Receipt Date: 20060303
  Transmission Date: 20070707
  Serious: Yes (Other)
  Sender: FDA-Public Use
  Company Number: US-2006-001455

PATIENT
  Age: 27 Year
  Sex: Female
  Weight: 61.2 kg

DRUGS (1)
  1. MIRENA [Suspect]
     Indication: CONTRACEPTION
     Dosage: 20 UG/DAY, CONT, INTRA-UTERINE
     Route: 015
     Dates: start: 20021206

REACTIONS (4)
  - ABORTION SPONTANEOUS [None]
  - MENSTRUATION IRREGULAR [None]
  - PREGNANCY WITH CONTRACEPTIVE DEVICE [None]
  - UTERINE HAEMORRHAGE [None]
